FAERS Safety Report 7735550-3 (Version None)
Quarter: 2011Q3

REPORT INFORMATION
  Report Type: 
  Country: None (occurrence: None)
  Receive Date: 20110907
  Receipt Date: 20110823
  Transmission Date: 20111222
  Serious: Yes (Life-Threatening, Hospitalization, Disabling)
  Sender: FDA-Public Use
  Company Number: GB-WATSON-2011-13565

PATIENT
  Age: 63 Year
  Sex: Female
  Weight: 64 kg

DRUGS (15)
  1. ALLOPURINOL [Concomitant]
     Indication: GOUT
     Dosage: 100 MG, BID
     Route: 048
  2. AUGMENTIN '125' [Concomitant]
     Indication: PRODUCT USED FOR UNKNOWN INDICATION
     Dosage: 1.2 G, UNK
     Route: 042
     Dates: start: 20110423, end: 20110423
  3. METRONIDAZOLE [Concomitant]
     Indication: GASTROINTESTINAL INFECTION
     Dosage: 400 MG, UNKNOWN
     Route: 042
     Dates: start: 20110423, end: 20110424
  4. COLCHICINE [Suspect]
     Indication: GOUT
     Dosage: 500 UG, BID
     Route: 048
     Dates: start: 20110224, end: 20110424
  5. HYOSCINE [Concomitant]
     Indication: PRODUCT USED FOR UNKNOWN INDICATION
     Dosage: UNK
  6. CYCLOSPORINE [Suspect]
     Indication: PROPHYLAXIS AGAINST TRANSPLANT REJECTION
     Dosage: 75 MG, BID
     Route: 048
     Dates: end: 20110426
  7. ATENOLOL [Concomitant]
     Indication: HYPERTENSION
     Dosage: 50 MG, UNKNOWN
     Route: 048
  8. LEVOTHYROXINE SODIUM [Concomitant]
     Indication: PRODUCT USED FOR UNKNOWN INDICATION
     Dosage: UNK
  9. CLARITHROMYCIN [Suspect]
     Indication: PNEUMONIA
     Dosage: 500 MG, BID
     Route: 048
     Dates: start: 20110423, end: 20110428
  10. KLIOVANCE [Concomitant]
     Indication: PRODUCT USED FOR UNKNOWN INDICATION
     Dosage: 1 DF, DAILY
     Dates: end: 20110424
  11. DOTHIEPIN HYDROCHLORIDE [Concomitant]
     Indication: DEPRESSION
     Dosage: 75 MG, UNKNOWN
     Route: 048
  12. PIPERACILLIN AND TAZOBACTAM [Concomitant]
     Indication: PNEUMONIA
     Dosage: 4.5 G, UNKNOWN
     Route: 042
     Dates: start: 20110424, end: 20110425
  13. LEVETIRACETAM [Concomitant]
     Indication: PRODUCT USED FOR UNKNOWN INDICATION
     Dosage: 250 MG, UNKNOWN
     Route: 048
  14. MOXONIDINE [Concomitant]
     Indication: HYPERTENSION
     Dosage: 200 UG, UNKNOWN
     Route: 048
  15. ACETAMINOPHEN [Concomitant]
     Indication: PRODUCT USED FOR UNKNOWN INDICATION
     Dosage: 4 G, QID
     Route: 048

REACTIONS (14)
  - BLOOD CREATINE PHOSPHOKINASE INCREASED [None]
  - RENAL FAILURE ACUTE [None]
  - PARAPARESIS [None]
  - GUILLAIN-BARRE SYNDROME [None]
  - PANCYTOPENIA [None]
  - NEUROPATHY PERIPHERAL [None]
  - MALAISE [None]
  - VOMITING [None]
  - METABOLIC ACIDOSIS [None]
  - ASTHENIA [None]
  - BLOOD CALCIUM DECREASED [None]
  - DIARRHOEA [None]
  - DRUG INTERACTION [None]
  - NAUSEA [None]
